FAERS Safety Report 8471709-8 (Version None)
Quarter: 2012Q2

REPORT INFORMATION
  Report Type: 
  Country: None (occurrence: None)
  Receive Date: 20120627
  Receipt Date: 20120620
  Transmission Date: 20120825
  Serious: Yes (Hospitalization)
  Sender: FDA-Public Use
  Company Number: GB-GLAXOSMITHKLINE-B0791873B

PATIENT
  Sex: Male

DRUGS (5)
  1. IMODIUM [Concomitant]
  2. MOVIPREP [Concomitant]
  3. PAZOPANIB [Suspect]
     Indication: METASTATIC RENAL CELL CARCINOMA
     Dosage: 600MG PER DAY
     Route: 048
     Dates: start: 20110308, end: 20120613
  4. UNSPECIFIED MEDICATION [Concomitant]
  5. AMLODIPINE [Concomitant]

REACTIONS (1)
  - URINARY RETENTION [None]
